FAERS Safety Report 24282764 (Version 3)
Quarter: 2025Q2

REPORT INFORMATION
  Report Type: Spontaneous
  Country: US (occurrence: US)
  Receive Date: 20240904
  Receipt Date: 20250605
  Transmission Date: 20250716
  Serious: Yes (Other)
  Sender: PFIZER
  Company Number: US-PFIZER INC-202400246785

PATIENT
  Age: 67 Year
  Sex: Male

DRUGS (2)
  1. BRAFTOVI [Suspect]
     Active Substance: ENCORAFENIB
     Dosage: 75 MG, 4X/DAY (75 MG 4 CAPSULE BY MOUTH DAILY)
     Route: 048
  2. MEKTOVI [Suspect]
     Active Substance: BINIMETINIB
     Dosage: 30 MG, 2X/DAY (15 MG 2 TABLETS TWICE DAILY)
     Route: 048

REACTIONS (2)
  - Malignant neoplasm progression [Unknown]
  - Dyspnoea [Unknown]
